FAERS Safety Report 6841326-1 (Version None)
Quarter: 2010Q3

REPORT INFORMATION
  Report Type: 
  Country: None (occurrence: None)
  Receive Date: 20100714
  Receipt Date: 20070821
  Transmission Date: 20110219
  Serious: No
  Sender: FDA-Public Use
  Company Number: PFIZER INC-2007054140

PATIENT
  Sex: Male
  Weight: 120.5 kg

DRUGS (1)
  1. CHANTIX [Suspect]
     Indication: SMOKING CESSATION THERAPY
     Dates: start: 20070301, end: 20070619

REACTIONS (3)
  - JOINT SWELLING [None]
  - OEDEMA PERIPHERAL [None]
  - PRURITUS [None]
